FAERS Safety Report 13447952 (Version 1)
Quarter: 2017Q2

REPORT INFORMATION
  Report Type: Spontaneous
  Country: US (occurrence: US)
  Receive Date: 20170417
  Receipt Date: 20170417
  Transmission Date: 20170830
  Serious: Yes (Hospitalization)
  Sender: FDA-Public Use
  Company Number: None

PATIENT
  Age: 48 Year
  Sex: Female
  Weight: 82.17 kg

DRUGS (4)
  1. ESTRADIOL MINIVELLE [Concomitant]
  2. CENTRUM MULTIVITAMIN [Concomitant]
  3. LOSARTAN 50MG TABLETS [Suspect]
     Active Substance: LOSARTAN
     Indication: HYPERTENSION
     Dosage: ? PILL 2XDAILY MOUTH
     Route: 048
     Dates: start: 20160901
  4. LATANOPROST. [Concomitant]
     Active Substance: LATANOPROST

REACTIONS (13)
  - Tremor [None]
  - Anxiety [None]
  - Bladder pain [None]
  - Dysuria [None]
  - Hypoaesthesia [None]
  - Confusional state [None]
  - Cold sweat [None]
  - Heart rate irregular [None]
  - Fatigue [None]
  - Pain [None]
  - Abdominal pain [None]
  - Chest pain [None]
  - Diverticulitis [None]

NARRATIVE: CASE EVENT DATE: 20161011
